FAERS Safety Report 11333514 (Version 2)
Quarter: 2017Q1

REPORT INFORMATION
  Report Type: Spontaneous
  Country: US (occurrence: US)
  Receive Date: 20150803
  Receipt Date: 20170119
  Transmission Date: 20170428
  Serious: Yes (Other)
  Sender: FDA-Public Use
  Company Number: US-ELI_LILLY_AND_COMPANY-US200708002923

PATIENT
  Age: 50 Year
  Sex: Male

DRUGS (14)
  1. ZYPREXA [Suspect]
     Active Substance: OLANZAPINE
     Dosage: 0.625 MG, 2/W
     Route: 048
  2. RISPERDAL [Suspect]
     Active Substance: RISPERIDONE
     Indication: PRODUCT USED FOR UNKNOWN INDICATION
     Dosage: UNK, UNKNOWN
     Route: 065
  3. ZYPREXA [Suspect]
     Active Substance: OLANZAPINE
     Indication: DELUSION
     Dosage: 9.375 MG, UNK
     Route: 048
     Dates: start: 200708
  4. ZYPREXA [Suspect]
     Active Substance: OLANZAPINE
     Dosage: 6.875 MG, UNK
     Route: 048
  5. LOVASTATIN. [Concomitant]
     Active Substance: LOVASTATIN
  6. KLONOPIN [Concomitant]
     Active Substance: CLONAZEPAM
  7. ANAFRANIL [Concomitant]
     Active Substance: CLOMIPRAMINE HYDROCHLORIDE
  8. HALCION [Concomitant]
     Active Substance: TRIAZOLAM
     Indication: INSOMNIA
  9. RITALIN [Concomitant]
     Active Substance: METHYLPHENIDATE HYDROCHLORIDE
  10. ZYPREXA [Suspect]
     Active Substance: OLANZAPINE
     Indication: ANGER
     Dosage: 2.5 MG, 4/D
     Route: 048
     Dates: start: 200702
  11. ZYPREXA [Suspect]
     Active Substance: OLANZAPINE
     Dosage: 15 MG, UNKNOWN
     Route: 048
  12. PROPANOLOL                         /00030001/ [Concomitant]
     Active Substance: PROPRANOLOL HYDROCHLORIDE
     Dosage: 40 MG, UNK
  13. ZYPREXA [Suspect]
     Active Substance: OLANZAPINE
     Dosage: 5.25 MG, DAILY (1/D)
     Dates: end: 20080319
  14. PAXIL [Concomitant]
     Active Substance: PAROXETINE HYDROCHLORIDE

REACTIONS (36)
  - Heart rate increased [Unknown]
  - Hypertension [Unknown]
  - Gastric ulcer [Recovered/Resolved]
  - Diarrhoea [Recovered/Resolved]
  - Suicidal ideation [Not Recovered/Not Resolved]
  - General physical health deterioration [Unknown]
  - Frequent bowel movements [Unknown]
  - Anxiety [Recovering/Resolving]
  - Parkinsonism [Unknown]
  - Dry mouth [Not Recovered/Not Resolved]
  - Nervousness [Unknown]
  - Feeling abnormal [Unknown]
  - Thirst decreased [Unknown]
  - Impaired self-care [Unknown]
  - Violence-related symptom [Unknown]
  - Respiration abnormal [Unknown]
  - Restlessness [Unknown]
  - Loss of dreaming [Unknown]
  - Cognitive disorder [Unknown]
  - Withdrawal syndrome [Not Recovered/Not Resolved]
  - Drug ineffective [Unknown]
  - Autonomic neuropathy [Unknown]
  - Akathisia [Recovering/Resolving]
  - Urinary retention [Unknown]
  - Constipation [Unknown]
  - Dependence [Not Recovered/Not Resolved]
  - Hypertonic bladder [Unknown]
  - Abnormal behaviour [Unknown]
  - Insomnia [Not Recovered/Not Resolved]
  - Gait disturbance [Unknown]
  - Amnesia [Unknown]
  - Panic attack [Unknown]
  - Anger [Unknown]
  - Emotional disorder [Unknown]
  - Musculoskeletal stiffness [Unknown]
  - Erectile dysfunction [Unknown]

NARRATIVE: CASE EVENT DATE: 2007
